FAERS Safety Report 5733490-2 (Version None)
Quarter: 2008Q2

REPORT INFORMATION
  Report Type: 
  Country: None (occurrence: None)
  Receive Date: 20080509
  Receipt Date: 20080501
  Transmission Date: 20081010
  Serious: Yes (Disabling)
  Sender: FDA-Public Use
  Company Number: GB-MERCK-0805GBR00024

PATIENT
  Age: 72 Year
  Sex: Male
  Weight: 97 kg

DRUGS (5)
  1. COZAAR [Suspect]
     Indication: CEREBROVASCULAR DISORDER
     Route: 065
     Dates: start: 20080205, end: 20080307
  2. DILTIAZEM HYDROCHLORIDE [Suspect]
     Route: 065
     Dates: start: 20080220, end: 20080307
  3. SIMVASTATIN [Suspect]
     Indication: ATRIAL FIBRILLATION
     Route: 065
     Dates: start: 20080205, end: 20080307
  4. WARFARIN [Suspect]
     Indication: ATRIAL FIBRILLATION
     Route: 065
     Dates: start: 20080325
  5. ASPIRIN [Concomitant]
     Route: 065
     Dates: start: 20021010, end: 20080220

REACTIONS (2)
  - EYE INFLAMMATION [None]
  - RASH GENERALISED [None]
